FAERS Safety Report 10084041 (Version 3)
Quarter: 2014Q3

REPORT INFORMATION
  Report Type: Spontaneous
  Country: JP (occurrence: JP)
  Receive Date: 20140417
  Receipt Date: 20140711
  Transmission Date: 20150326
  Serious: Yes (Other)
  Sender: FDA-Public Use
  Company Number: JP-PFIZER INC-2014065364

PATIENT
  Age: 36 Year
  Sex: Female

DRUGS (7)
  1. SOLU-CORTEF [Suspect]
     Active Substance: HYDROCORTISONE SODIUM SUCCINATE
     Dosage: 300 MG, 1X/DAY
     Route: 042
     Dates: start: 20140301, end: 20140304
  2. PROSTADIL [Concomitant]
     Indication: VIITH NERVE PARALYSIS
     Dosage: 20 UG, 1X/DAY
     Route: 042
     Dates: start: 20140226, end: 20140303
  3. VITAMIN B12 [Concomitant]
     Active Substance: CYANOCOBALAMIN
     Indication: VIITH NERVE PARALYSIS
     Dosage: 1 MG, 1X/DAY
     Route: 042
     Dates: start: 20140226, end: 20140303
  4. ADETPHOS [Concomitant]
     Active Substance: ADENOSINE TRIPHOSPHATE
     Indication: VIITH NERVE PARALYSIS
     Dosage: 20 MG, 1X/DAY
     Route: 042
     Dates: start: 20140226, end: 20140303
  5. MUCOSTA [Concomitant]
     Active Substance: REBAMIPIDE
     Dosage: UNK
     Route: 048
     Dates: start: 20140226, end: 20140304
  6. VALTREX [Suspect]
     Active Substance: VALACYCLOVIR HYDROCHLORIDE
     Dosage: 1000 MG, 3X/DAY
     Route: 048
     Dates: start: 20140226, end: 20140304
  7. SOLU-CORTEF [Suspect]
     Active Substance: HYDROCORTISONE SODIUM SUCCINATE
     Indication: VIITH NERVE PARALYSIS
     Dosage: 400 MG, 1X/DAY
     Route: 042
     Dates: start: 20140226, end: 20140228

REACTIONS (3)
  - Vision blurred [Recovered/Resolved]
  - Face oedema [Recovered/Resolved]
  - Eye pain [Recovered/Resolved]

NARRATIVE: CASE EVENT DATE: 20140304
